FAERS Safety Report 7097202-5 (Version None)
Quarter: 2010Q4

REPORT INFORMATION
  Report Type: 
  Country: None (occurrence: None)
  Receive Date: 20101111
  Receipt Date: 20101103
  Transmission Date: 20110411
  Serious: Yes (Hospitalization)
  Sender: FDA-Public Use
  Company Number: CA-PFIZER INC-2010140120

PATIENT
  Age: 62 Year
  Sex: Male
  Weight: 78.6 kg

DRUGS (5)
  1. BLINDED *NO SUBJECT DRUG [Suspect]
     Indication: DEMENTIA ALZHEIMER'S TYPE
     Dosage: 0.1, 0.5 MG/KG EVERY 2 MONTHS
     Route: 042
     Dates: start: 20090119, end: 20100719
  2. PLACEBO [Suspect]
     Indication: DEMENTIA ALZHEIMER'S TYPE
     Dosage: 0.1, 0.5 MG/KG EVERY 2 MONTHS
     Route: 042
     Dates: start: 20090119, end: 20100719
  3. BLINDED PF-04360365 [Suspect]
     Indication: DEMENTIA ALZHEIMER'S TYPE
     Dosage: 0.1, 0.5 MG/KG EVERY 2 MONTHS
     Route: 042
     Dates: start: 20090119, end: 20100719
  4. DILANTIN [Suspect]
     Dosage: UNK
     Dates: end: 20101018
  5. VALPROATE SODIUM [Concomitant]
     Dosage: UNK
     Dates: start: 20101018

REACTIONS (1)
  - DELIRIUM [None]
